FAERS Safety Report 16381373 (Version 2)
Quarter: 2019Q2

REPORT INFORMATION
  Report Type: Spontaneous
  Country: US (occurrence: US)
  Receive Date: 20190603
  Receipt Date: 20190610
  Transmission Date: 20190711
  Serious: Yes (Other)
  Sender: FDA-Public Use
  Company Number: US-CIPLA LTD.-2019US04148

PATIENT

DRUGS (5)
  1. TOPIRAMATE. [Suspect]
     Active Substance: TOPIRAMATE
     Indication: EPILEPSY
     Dosage: 400 MILLIGRAM
     Route: 065
     Dates: start: 20181011, end: 20181224
  2. PNV (MECLIZINE HYDROCHLORIDE\PYRIDOXINE HYDROCHLORIDE) [Suspect]
     Active Substance: MECLIZINE HYDROCHLORIDE\PYRIDOXINE HYDROCHLORIDE
     Indication: PREGNANCY
     Dosage: UNK
     Route: 065
     Dates: start: 20181108, end: 20181224
  3. LEVETIRACETAM. [Suspect]
     Active Substance: LEVETIRACETAM
     Indication: EPILEPSY
     Dosage: 2500 MILLIGRAM
     Route: 065
     Dates: start: 20181011, end: 20181224
  4. OXCARBAZEPINE. [Suspect]
     Active Substance: OXCARBAZEPINE
     Indication: EPILEPSY
     Dosage: 900 MILLIGRAM
     Route: 065
     Dates: start: 20181011, end: 20181224
  5. FOLIC ACID. [Suspect]
     Active Substance: FOLIC ACID
     Indication: PREGNANCY
     Dosage: UNK
     Route: 065
     Dates: start: 20181011, end: 20181224

REACTIONS (2)
  - Abortion spontaneous [Unknown]
  - Exposure during pregnancy [Unknown]

NARRATIVE: CASE EVENT DATE: 20181224
